FAERS Safety Report 16478024 (Version 1)
Quarter: 2019Q2

REPORT INFORMATION
  Report Type: Spontaneous
  Country: CA (occurrence: CA)
  Receive Date: 20190626
  Receipt Date: 20190626
  Transmission Date: 20190711
  Serious: Yes (Other)
  Sender: FDA-Public Use
  Company Number: CA-AUROBINDO-AUR-APL-2019-035997

PATIENT

DRUGS (16)
  1. SANDOSTATIN [Suspect]
     Active Substance: OCTREOTIDE ACETATE
     Indication: GASTRINOMA
     Dosage: 20 MILLIGRAM, EVERY MONTH
     Route: 030
  2. PREVACID [Concomitant]
     Active Substance: LANSOPRAZOLE
     Indication: PRODUCT USED FOR UNKNOWN INDICATION
     Dosage: UNK
     Route: 065
  3. AMLODIPINE [Suspect]
     Active Substance: AMLODIPINE BESYLATE
     Indication: HYPERTENSION
     Dosage: UNK
     Route: 065
  4. SANDOSTATIN [Suspect]
     Active Substance: OCTREOTIDE ACETATE
     Dosage: 30 MILLIGRAM, FOR EVERY 2 WEEKS
     Route: 030
  5. AMLODIPINE [Suspect]
     Active Substance: AMLODIPINE BESYLATE
     Dosage: 0.5 DOSAGE FORM, DAILY
     Route: 065
  6. IRBESARTAN TABLETS [Suspect]
     Active Substance: IRBESARTAN
     Indication: PRODUCT USED FOR UNKNOWN INDICATION
     Dosage: UNK
     Route: 065
  7. SANDOSTATIN [Suspect]
     Active Substance: OCTREOTIDE ACETATE
     Indication: GASTRINOMA
     Dosage: 30 MILLIGRAM, FOR EVERY 2 WEEKS
     Route: 030
  8. SANDOSTATIN [Suspect]
     Active Substance: OCTREOTIDE ACETATE
     Dosage: 30 MILLIGRAM,EVERY MONTH
     Route: 030
  9. AMLODIPINE [Suspect]
     Active Substance: AMLODIPINE BESYLATE
     Dosage: 2.5 MILLIGRAM, DAILY
     Route: 065
  10. SANDOSTATIN [Suspect]
     Active Substance: OCTREOTIDE ACETATE
     Dosage: 30 MILLIGRAM,EVERY MONTH
     Route: 030
  11. SANDOSTATIN [Suspect]
     Active Substance: OCTREOTIDE ACETATE
     Dosage: 30 MILLIGRAM, FOR EVERY 2 WEEKS
     Route: 030
  12. SANDOSTATIN [Suspect]
     Active Substance: OCTREOTIDE ACETATE
     Dosage: 30 MILLIGRAM,EVERY MONTH
     Route: 030
  13. SANDOSTATIN [Suspect]
     Active Substance: OCTREOTIDE ACETATE
     Dosage: 30 MILLIGRAM, FOR EVERY 2 WEEKS
     Route: 030
  14. AMLODIPINE [Suspect]
     Active Substance: AMLODIPINE BESYLATE
     Dosage: 1 DOSAGE FORM, DAILY
     Route: 065
  15. AMLODIPINE [Suspect]
     Active Substance: AMLODIPINE BESYLATE
     Dosage: 5 MILLIGRAM, DAILY
     Route: 065
  16. BISOPROLOL [Suspect]
     Active Substance: BISOPROLOL
     Indication: PRODUCT USED FOR UNKNOWN INDICATION
     Dosage: 5 MILLIGRAM
     Route: 048

REACTIONS (19)
  - Oesophageal hypomotility [Recovering/Resolving]
  - Gastric disorder [Recovering/Resolving]
  - Nasopharyngitis [Recovering/Resolving]
  - Bowel movement irregularity [Recovering/Resolving]
  - Gastrointestinal perforation [Recovering/Resolving]
  - Blood pressure increased [Recovering/Resolving]
  - Malignant neoplasm progression [Recovering/Resolving]
  - Pyrexia [Recovering/Resolving]
  - Pneumonia [Recovering/Resolving]
  - Abdominal pain lower [Recovering/Resolving]
  - Inappropriate schedule of product administration [Recovering/Resolving]
  - Blood pressure systolic increased [Recovering/Resolving]
  - Cyst [Recovering/Resolving]
  - Weight decreased [Recovering/Resolving]
  - Cough [Recovering/Resolving]
  - Fatigue [Recovering/Resolving]
  - Abdominal neoplasm [Recovering/Resolving]
  - Hepatic neoplasm [Recovering/Resolving]
  - Needle issue [Recovering/Resolving]
